FAERS Safety Report 11093670 (Version 1)
Quarter: 2015Q2

REPORT INFORMATION
  Report Type: Report from Study
  Country: US (occurrence: US)
  Receive Date: 20150506
  Receipt Date: 20150506
  Transmission Date: 20150821
  Serious: Yes (Death)
  Sender: FDA-Public Use
  Company Number: US-ASTRAZENECA-2015SE41533

PATIENT
  Age: 32396 Day
  Sex: Female
  Weight: 49.9 kg

DRUGS (9)
  1. UNK NOT SPECIFIED [Concomitant]
     Indication: ABDOMINAL PAIN UPPER
  2. LAXATIVE [Concomitant]
     Active Substance: UNSPECIFIED INGREDIENT
  3. UNKNOWN [Concomitant]
     Active Substance: UNSPECIFIED INGREDIENT
     Indication: ABDOMINAL PAIN UPPER
  4. CRESTOR [Suspect]
     Active Substance: ROSUVASTATIN CALCIUM
     Indication: BLOOD CHOLESTEROL INCREASED
     Route: 048
  5. UNK NOT SPECIFIED [Concomitant]
     Indication: ABDOMINAL PAIN UPPER
  6. UNKNOWN [Concomitant]
     Active Substance: UNSPECIFIED INGREDIENT
     Indication: ABDOMINAL PAIN UPPER
  7. UNK NOT SPECIFIED [Concomitant]
     Indication: ABDOMINAL PAIN UPPER
  8. UNKNOWN [Concomitant]
     Active Substance: UNSPECIFIED INGREDIENT
     Indication: ABDOMINAL PAIN UPPER
  9. MORPHINE [Concomitant]
     Active Substance: MORPHINE

REACTIONS (4)
  - Death [Fatal]
  - Infrequent bowel movements [Unknown]
  - Abdominal pain lower [Unknown]
  - Weight decreased [Unknown]

NARRATIVE: CASE EVENT DATE: 20150322
